FAERS Safety Report 8804423 (Version 2)
Quarter: 2012Q4

REPORT INFORMATION
  Report Type: 
  Country: US (occurrence: US)
  Receive Date: 20120923
  Receipt Date: 20121010
  Transmission Date: 20130627
  Serious: No
  Sender: FDA-Public Use
  Company Number: US-TEVA-357394USA

PATIENT
  Sex: Male

DRUGS (2)
  1. NUVIGIL [Suspect]
     Indication: CIRCADIAN RHYTHM SLEEP DISORDER
     Route: 048
     Dates: start: 20120605, end: 20120802
  2. NUVIGIL [Suspect]
     Indication: SLEEP APNOEA SYNDROME

REACTIONS (2)
  - Nausea [Recovered/Resolved]
  - Personality change [Recovered/Resolved]
